FAERS Safety Report 9478837 (Version 4)
Quarter: 2014Q3

REPORT INFORMATION
  Report Type: Other
  Country: US (occurrence: US)
  Receive Date: 20130827
  Receipt Date: 20140815
  Transmission Date: 20150326
  Serious: Yes (Death, Other)
  Sender: FDA-Public Use
  Company Number: US-INCYTE CORPORATION-2013IN001442

PATIENT
  Sex: Male

DRUGS (9)
  1. JAKAFI [Suspect]
     Active Substance: RUXOLITINIB
     Indication: BLOOD DISORDER
     Dosage: 10 MG, QD
     Route: 048
     Dates: start: 20130301, end: 20130321
  2. JAKAFI [Suspect]
     Active Substance: RUXOLITINIB
     Indication: MYELOFIBROSIS
     Dosage: 10 MG, BID
     Route: 048
     Dates: start: 20130226
  3. ALLOPURINOL. [Concomitant]
     Active Substance: ALLOPURINOL
  4. ZOVIRAX [Concomitant]
     Active Substance: ACYCLOVIR
  5. NEXIUM [Concomitant]
     Active Substance: ESOMEPRAZOLE MAGNESIUM
  6. SINEQUAN [Concomitant]
     Active Substance: DOXEPIN HYDROCHLORIDE
  7. NEURONTIN [Concomitant]
     Active Substance: GABAPENTIN
  8. NORCO [Concomitant]
     Active Substance: ACETAMINOPHEN\HYDROCODONE BITARTRATE
  9. KCL [Concomitant]
     Active Substance: POTASSIUM CHLORIDE

REACTIONS (7)
  - Disease progression [Fatal]
  - Pancytopenia [Unknown]
  - Myocardial infarction [Unknown]
  - Acute myeloid leukaemia [Fatal]
  - Subdural haematoma [Unknown]
  - Haemorrhage intracranial [Unknown]
  - Cerebrovascular accident [Unknown]
